FAERS Safety Report 25631123 (Version 2)
Quarter: 2025Q3

REPORT INFORMATION
  Report Type: Spontaneous
  Country: US (occurrence: US)
  Receive Date: 20250801
  Receipt Date: 20250806
  Transmission Date: 20251021
  Serious: No
  Sender: VIIV
  Company Number: US-VIIV HEALTHCARE- US2025097716

PATIENT
  Age: 38 Year
  Sex: Female

DRUGS (3)
  1. CABOTEGRAVIR [Suspect]
     Active Substance: CABOTEGRAVIR
     Indication: Prophylaxis against HIV infection
  2. CABOTEGRAVIR [Suspect]
     Active Substance: CABOTEGRAVIR
  3. CABOTEGRAVIR [Suspect]
     Active Substance: CABOTEGRAVIR

REACTIONS (2)
  - Injection site nodule [Recovering/Resolving]
  - Injection site infection [Unknown]
